FAERS Safety Report 20448882 (Version 1)
Quarter: 2022Q1

REPORT INFORMATION
  Report Type: Spontaneous
  Country: US (occurrence: US)
  Receive Date: 20220209
  Receipt Date: 20220209
  Transmission Date: 20220423
  Serious: No
  Sender: FDA-Public Use
  Company Number: US-SA-SAC20220203001522

PATIENT
  Age: 30 Year
  Sex: Female

DRUGS (4)
  1. DUPIXENT [Suspect]
     Active Substance: DUPILUMAB
     Indication: Dermatitis atopic
     Route: 058
     Dates: start: 20211217
  2. KLONOPIN [Concomitant]
     Active Substance: CLONAZEPAM
  3. CELECOXIB [Concomitant]
     Active Substance: CELECOXIB
  4. ENPRESSE [Concomitant]
     Active Substance: ETHINYL ESTRADIOL\LEVONORGESTREL

REACTIONS (5)
  - Injection site eczema [Unknown]
  - Pruritus [Unknown]
  - Skin discolouration [Unknown]
  - Dermatitis atopic [Unknown]
  - Injection site reaction [Unknown]
